FAERS Safety Report 6213542-3 (Version None)
Quarter: 2009Q2

REPORT INFORMATION
  Report Type: 
  Country: None (occurrence: None)
  Receive Date: 20090603
  Receipt Date: 20090527
  Transmission Date: 20091009
  Serious: Yes (Disabling, Other)
  Sender: FDA-Public Use
  Company Number: CN-WATSON-2009-03811

PATIENT
  Age: 32 Year
  Sex: Male

DRUGS (2)
  1. GENTAMICIN SULFATE (WATSON LABORATORIES) [Suspect]
     Indication: KERATITIS VIRAL
     Dosage: 200 MG
     Route: 056
  2. GENTAMICIN SULFATE (WATSON LABORATORIES) [Suspect]
     Indication: BACTERIAL INFECTION

REACTIONS (5)
  - BLINDNESS [None]
  - DRUG ADMINISTRATION ERROR [None]
  - RETINAL HAEMORRHAGE [None]
  - RETINAL ISCHAEMIA [None]
  - RETINOPATHY [None]
